FAERS Safety Report 10085118 (Version 1)
Quarter: 2014Q2

REPORT INFORMATION
  Report Type: Spontaneous
  Country: US (occurrence: US)
  Receive Date: 20140417
  Receipt Date: 20140417
  Transmission Date: 20141212
  Serious: No
  Sender: FDA-Public Use
  Company Number: US-PFIZER INC-2014104041

PATIENT
  Age: 85 Year
  Sex: Male
  Weight: 80.7 kg

DRUGS (9)
  1. TOVIAZ [Suspect]
     Indication: HYPERTONIC BLADDER
     Dosage: 4 MG, 1X/DAY
     Route: 048
     Dates: start: 201404, end: 201404
  2. METFORMIN [Concomitant]
     Indication: DIABETES MELLITUS
     Dosage: UNK, 2X/DAY
  3. HYDROCHLOROTHIAZIDE [Concomitant]
     Indication: JOINT SWELLING
     Dosage: UNK
  4. DONEPEZIL [Concomitant]
     Indication: MEMORY IMPAIRMENT
     Dosage: 5 MG, UNK
  5. GABAPENTIN [Concomitant]
     Dosage: 300 MG, UNK
  6. SIMVASTATIN [Concomitant]
     Indication: BLOOD CHOLESTEROL INCREASED
     Dosage: 40 MG, 1X/DAY
  7. LISINOPRIL [Concomitant]
     Indication: HYPERTENSION
     Dosage: 20 MG, UNK
  8. ASPIRIN [Concomitant]
     Dosage: 81 MG, UNK
  9. GLYBURIDE [Concomitant]
     Dosage: UNK

REACTIONS (5)
  - Burning sensation [Unknown]
  - Body height decreased [Unknown]
  - Cough [Unknown]
  - Dysstasia [Unknown]
  - Arthralgia [Recovered/Resolved]
